FAERS Safety Report 4883228-6 (Version None)
Quarter: 2006Q1

REPORT INFORMATION
  Report Type: 
  Country: None (occurrence: None)
  Receive Date: 20060117
  Receipt Date: 20060117
  Transmission Date: 20060701
  Serious: Yes (Other)
  Sender: FDA-Public Use
  Company Number: None

PATIENT
  Age: 33 Year
  Sex: Female

DRUGS (2)
  1. WELLBUTRIN SR [Suspect]
     Indication: DEPRESSION
     Dosage: ORAL;150.0 MILLIGRAM
     Route: 048
     Dates: start: 20020906, end: 20051024
  2. WELLBUTRIN SR [Suspect]
     Indication: HIV INFECTION
     Dosage: ORAL;150.0 MILLIGRAM
     Route: 048
     Dates: start: 20020906, end: 20051024

REACTIONS (3)
  - BLEPHAROSPASM [None]
  - MOOD ALTERED [None]
  - TREMOR [None]
